FAERS Safety Report 25726520 (Version 5)
Quarter: 2025Q4

REPORT INFORMATION
  Report Type: Report from Study
  Country: EU (occurrence: EU)
  Receive Date: 20250826
  Receipt Date: 20251208
  Transmission Date: 20260117
  Serious: Yes (Other)
  Sender: TORRENT PHARMA INC.
  Company Number: None

PATIENT
  Age: 44 Year
  Sex: Male

DRUGS (10)
  1. MORPHINE [Suspect]
     Active Substance: MORPHINE
     Indication: Product used for unknown indication
     Dosage: UNKNOWN
     Route: 065
  2. PREGABALIN [Suspect]
     Active Substance: PREGABALIN
     Indication: Product used for unknown indication
     Dosage: UNKNOWN
     Route: 065
  3. CLONAZEPAM [Suspect]
     Active Substance: CLONAZEPAM
     Indication: Product used for unknown indication
     Dosage: UNKNOWN
     Route: 065
  4. CODEINE [Suspect]
     Active Substance: CODEINE
     Indication: Product used for unknown indication
     Dosage: UNKNOWN
     Route: 065
  5. LORAZEPAM [Suspect]
     Active Substance: LORAZEPAM
     Indication: Product used for unknown indication
     Dosage: UNKNOWN
     Route: 065
  6. BUPRENORPHINE [Suspect]
     Active Substance: BUPRENORPHINE
     Indication: Product used for unknown indication
     Dosage: UNKNOWN
     Route: 065
  7. AMPHETAMINE ADIPATE [Suspect]
     Active Substance: AMPHETAMINE ADIPATE
     Indication: Product used for unknown indication
     Dosage: UNKNOWN
     Route: 065
  8. ALCOHOL [Suspect]
     Active Substance: ALCOHOL
     Indication: Product used for unknown indication
     Dosage: UNKNOWN
     Route: 065
  9. METHYLPHENIDATE HYDROCHLORIDE [Suspect]
     Active Substance: METHYLPHENIDATE HYDROCHLORIDE
     Indication: Product used for unknown indication
     Dosage: UNKNOWN
     Route: 065
  10. METHYLENEDIOXYPYRROLIDINOHEXIOPHENONE [Suspect]
     Active Substance: METHYLENEDIOXYPYRROLIDINOHEXIOPHENONE
     Indication: Product used for unknown indication
     Dosage: 14
     Route: 065

REACTIONS (9)
  - Lethargy [Unknown]
  - Impaired driving ability [Unknown]
  - Abnormal behaviour [Unknown]
  - Drug abuse [Unknown]
  - Somnolence [Unknown]
  - Panic reaction [Unknown]
  - Aggression [Unknown]
  - Bradykinesia [Unknown]
  - Intentional product misuse [Unknown]
